FAERS Safety Report 6860445-7 (Version None)
Quarter: 2010Q3

REPORT INFORMATION
  Report Type: 
  Country: None (occurrence: None)
  Receive Date: 20100720
  Receipt Date: 20100713
  Transmission Date: 20110219
  Serious: Yes (Other)
  Sender: FDA-Public Use
  Company Number: BR-ROCHE-714016

PATIENT
  Sex: Male
  Weight: 75 kg

DRUGS (9)
  1. TOCILIZUMAB [Suspect]
     Indication: RHEUMATOID ARTHRITIS
     Dosage: FORM: INFUSION
     Route: 042
     Dates: start: 20100428
  2. TOCILIZUMAB [Suspect]
     Dosage: SECOND INFUSION
     Route: 042
     Dates: start: 20100609
  3. TOCILIZUMAB [Suspect]
     Dosage: THIRD INFUSION
     Route: 042
     Dates: start: 20100707, end: 20100701
  4. METICORTEN [Concomitant]
     Dosage: DOSE REPORTED AS 30 MG IN ADDITIONAL INFO. SECTION
  5. ENALAPRIL MALEATE [Concomitant]
  6. METHOTREXATE [Concomitant]
  7. FOLIC ACID [Concomitant]
  8. DICLOFENAC [Concomitant]
  9. SELOZOK [Concomitant]

REACTIONS (5)
  - APPARENT DEATH [None]
  - PAINFUL RESPIRATION [None]
  - PYREXIA [None]
  - TACHYCARDIA [None]
  - WEIGHT DECREASED [None]
